FAERS Safety Report 5834219-X (Version None)
Quarter: 2008Q3

REPORT INFORMATION
  Report Type: 
  Country: None (occurrence: None)
  Receive Date: 20080801
  Receipt Date: 20080716
  Transmission Date: 20090109
  Serious: Yes (Other)
  Sender: FDA-Public Use
  Company Number: 2008AL008454

PATIENT
  Age: 36 Year
  Sex: Male
  Weight: 162.3877 kg

DRUGS (1)
  1. DIGOXIN [Suspect]
     Indication: CARDIAC FAILURE CONGESTIVE
     Dosage: 0.25, DAILY, PO
     Route: 048
     Dates: start: 20051123, end: 20080513

REACTIONS (5)
  - AMNESIA [None]
  - DIZZINESS [None]
  - FEELING ABNORMAL [None]
  - NAUSEA [None]
  - SLEEP DISORDER [None]
